FAERS Safety Report 8546459-X (Version None)
Quarter: 2012Q3

REPORT INFORMATION
  Report Type: 
  Country: None (occurrence: None)
  Receive Date: 20120727
  Receipt Date: 20120305
  Transmission Date: 20120928
  Serious: No
  Sender: FDA-Public Use
  Company Number: US-ASTRAZENECA-2012SE02162

PATIENT
  Age: 43 Year
  Sex: Male
  Weight: 93 kg

DRUGS (11)
  1. ZOLOFT [Concomitant]
     Indication: ANXIETY
     Route: 048
  2. PROZAC [Concomitant]
     Indication: ANXIETY
     Route: 048
     Dates: start: 20120301
  3. LEXOPRIL [Concomitant]
  4. ZOLOFT [Concomitant]
     Indication: DEPRESSION
     Route: 048
  5. PROZAC [Concomitant]
     Indication: DEPRESSION
     Route: 048
     Dates: start: 20120301
  6. XANAX [Concomitant]
     Indication: DEPRESSION
     Dosage: 1 TO 2 MG DAILY
     Route: 048
     Dates: start: 20110101
  7. CLONIPINE [Concomitant]
     Indication: ANXIETY
     Route: 048
  8. XANAX [Concomitant]
     Indication: ANXIETY
     Dosage: 1 TO 2 MG DAILY
     Route: 048
     Dates: start: 20110101
  9. SEROQUEL XR [Suspect]
     Indication: ANXIETY
     Route: 048
  10. SEROQUEL XR [Suspect]
     Indication: DEPRESSION
     Route: 048
  11. CLONIPINE [Concomitant]
     Indication: DEPRESSION
     Route: 048

REACTIONS (6)
  - INSOMNIA [None]
  - OFF LABEL USE [None]
  - THERAPEUTIC RESPONSE UNEXPECTED [None]
  - HEADACHE [None]
  - INTENTIONAL DRUG MISUSE [None]
  - WRONG TECHNIQUE IN DRUG USAGE PROCESS [None]
